FAERS Safety Report 6193267-3 (Version None)
Quarter: 2009Q2

REPORT INFORMATION
  Report Type: 
  Country: None (occurrence: None)
  Receive Date: 20090518
  Receipt Date: 20090511
  Transmission Date: 20091009
  Serious: Yes (Death)
  Sender: FDA-Public Use
  Company Number: B0572401A

PATIENT
  Age: 14 Day
  Sex: Male
  Weight: 3.2 kg

DRUGS (1)
  1. ZIDOVUDINE [Suspect]
     Dosage: 12MG TWICE PER DAY
     Route: 048
     Dates: start: 20090406, end: 20090419

REACTIONS (3)
  - CRYING [None]
  - EPISTAXIS [None]
  - SUDDEN INFANT DEATH SYNDROME [None]
